FAERS Safety Report 9061704 (Version 1)
Quarter: 2013Q1

REPORT INFORMATION
  Report Type: Spontaneous
  Country: US (occurrence: None)
  Receive Date: 20130118
  Receipt Date: 20130118
  Transmission Date: 20140127
  Serious: Yes (Death)
  Sender: FDA-Public Use
  Company Number: 2013MA000185

PATIENT
  Age: 22 Year
  Sex: Male

DRUGS (4)
  1. KADIAN [Suspect]
     Indication: PRODUCT USED FOR UNKNOWN INDICATION
     Route: 048
  2. ACETAMINOPHEN W/HYDROCODONE [Suspect]
  3. ALPRAZOLAM TABLETS USP, 2 MG (PUREPAC) (ALPRAZOLAM) [Suspect]
  4. DIAZEPAM TABLETS USP, 10 MG (PUREPAC) (DIAZEPAM) [Suspect]

REACTIONS (1)
  - Drug abuse [None]
